FAERS Safety Report 8961522 (Version 1)
Quarter: 2012Q4

REPORT INFORMATION
  Report Type: 
  Country: US (occurrence: US)
  Receive Date: 20121213
  Receipt Date: 20121213
  Transmission Date: 20130627
  Serious: Yes (Hospitalization)
  Sender: FDA-Public Use
  Company Number: US-BAYER-2012-129830

PATIENT
  Age: 20 Year
  Sex: Female

DRUGS (4)
  1. YAZ [Suspect]
  2. PERCOCET [Concomitant]
  3. LEXAPRO [Concomitant]
     Dosage: 10 mg, daily
  4. PRENATE DHA [Concomitant]

REACTIONS (1)
  - Pulmonary embolism [Recovered/Resolved]
